FAERS Safety Report 19947636 (Version 1)
Quarter: 2021Q4

REPORT INFORMATION
  Report Type: Spontaneous
  Country: US (occurrence: US)
  Receive Date: 20211013
  Receipt Date: 20211013
  Transmission Date: 20220304
  Serious: Yes (Other)
  Sender: FDA-Public Use
  Company Number: US-HIKMA PHARMACEUTICALS USA INC.-US-H14001-21-03879

PATIENT
  Age: 62 Year
  Sex: Female

DRUGS (1)
  1. INFUMORPH [Suspect]
     Active Substance: MORPHINE SULFATE
     Indication: Spinal pain
     Route: 037

REACTIONS (1)
  - Drug withdrawal syndrome [Not Recovered/Not Resolved]

NARRATIVE: CASE EVENT DATE: 20210212
